FAERS Safety Report 4607335-8 (Version None)
Quarter: 2005Q1

REPORT INFORMATION
  Report Type: 
  Country: None (occurrence: None)
  Receive Date: 20050310
  Receipt Date: 19981120
  Transmission Date: 20050727
  Serious: Yes (Hospitalization)
  Sender: FDA-Public Use
  Company Number: US014790

PATIENT
  Age: 48 Year
  Sex: Male

DRUGS (1)
  1. MODAFINIL [Suspect]
     Indication: NARCOLEPSY
     Dosage: 200 MG QD; ORAL
     Route: 048

REACTIONS (1)
  - MYOCARDIAL INFARCTION [None]
